FAERS Safety Report 25232592 (Version 3)
Quarter: 2025Q2

REPORT INFORMATION
  Report Type: Report from Study
  Country: KR (occurrence: KR)
  Receive Date: 20250424
  Receipt Date: 20250516
  Transmission Date: 20250717
  Serious: Yes (Hospitalization, Other)
  Sender: ABBVIE
  Company Number: KR-ABBVIE-6239299

PATIENT
  Age: 77 Year
  Sex: Male
  Weight: 62 kg

DRUGS (8)
  1. RINVOQ [Suspect]
     Active Substance: UPADACITINIB
     Indication: Rheumatoid arthritis
     Dosage: FORM STRENGTH: 15 MILLIGRAM
     Route: 048
     Dates: start: 20241230
  2. Sinil folic acid [Concomitant]
     Indication: Anaemia
     Route: 048
     Dates: start: 20220905
  3. Fexuclue [Concomitant]
     Indication: Gastrooesophageal reflux disease
     Dosage: TAB 40 MILLIGRAM
     Route: 048
     Dates: start: 20221125, end: 20250128
  4. Exoperin [Concomitant]
     Indication: Rheumatoid arthritis
     Dosage: FORM STRENGTH 50 MILLIGRAMS
     Route: 048
     Dates: start: 20221125, end: 20250128
  5. METHOTREXATE [Concomitant]
     Active Substance: METHOTREXATE
     Indication: Rheumatoid arthritis
     Dosage: RHEUMATREX. FOLEX
     Dates: start: 20230508
  6. CELECOXIB [Concomitant]
     Active Substance: CELECOXIB
     Indication: Rheumatoid arthritis
     Dates: start: 20220905, end: 20250128
  7. K-CAB [Concomitant]
     Indication: Prophylaxis
     Dosage: TAB 50 MILLIGRAM
     Route: 048
     Dates: start: 20250505
  8. CALCIUM CARBONATE\CHOLECALCIFEROL [Concomitant]
     Active Substance: CALCIUM CARBONATE\CHOLECALCIFEROL
     Indication: Calcium metabolism disorder
     Dosage: TAB
     Route: 048
     Dates: start: 20240507

REACTIONS (2)
  - Gastrointestinal haemorrhage [Recovered/Resolved]
  - Haematochezia [Recovered/Resolved]

NARRATIVE: CASE EVENT DATE: 20250407
